FAERS Safety Report 21333227 (Version 1)
Quarter: 2022Q3

REPORT INFORMATION
  Report Type: Spontaneous
  Country: US (occurrence: US)
  Receive Date: 20220914
  Receipt Date: 20220914
  Transmission Date: 20221027
  Serious: No
  Sender: FDA-Public Use
  Company Number: US-PFIZER INC-PV202200062276

PATIENT

DRUGS (2)
  1. PREMARIN [Suspect]
     Active Substance: ESTROGENS, CONJUGATED
     Dosage: UNK
  2. JARDIANCE [Suspect]
     Active Substance: EMPAGLIFLOZIN
     Dosage: UNK

REACTIONS (1)
  - Drug hypersensitivity [Unknown]
